FAERS Safety Report 10187988 (Version 1)
Quarter: 2014Q2

REPORT INFORMATION
  Report Type: Spontaneous
  Country: US (occurrence: None)
  Receive Date: 20140521
  Receipt Date: 20140521
  Transmission Date: 20141212
  Serious: Yes (Death)
  Sender: FDA-Public Use
  Company Number: None

PATIENT
  Age: 61 Year
  Sex: Male
  Weight: 73.2 kg

DRUGS (1)
  1. DOVITINIB [Suspect]
     Dosage: 5 DAYS 2 DAYS OFF?
     Route: 048

REACTIONS (3)
  - Asthenia [None]
  - Disease progression [None]
  - Colorectal cancer metastatic [None]
